FAERS Safety Report 8327061-1 (Version None)
Quarter: 2012Q2

REPORT INFORMATION
  Report Type: 
  Country: None (occurrence: None)
  Receive Date: 20120501
  Receipt Date: 20111221
  Transmission Date: 20120825
  Serious: No
  Sender: FDA-Public Use
  Company Number: US-SANOFI-AVENTIS-2011SA084487

PATIENT
  Age: 67 Year
  Sex: Male

DRUGS (1)
  1. APIDRA [Suspect]
     Dosage: VIA INFUSION PUMP. DOSE:180 UNIT(S)
     Route: 058
     Dates: start: 20111101

REACTIONS (1)
  - BLOOD CREATININE INCREASED [None]
